FAERS Safety Report 13608455 (Version 1)
Quarter: 2017Q2

REPORT INFORMATION
  Report Type: Spontaneous
  Country: US (occurrence: US)
  Receive Date: 20170602
  Receipt Date: 20170602
  Transmission Date: 20170830
  Serious: Yes (Other)
  Sender: FDA-Public Use
  Company Number: US-BAYER-2017-101177

PATIENT
  Age: 60 Year
  Sex: Female
  Weight: 110.7 kg

DRUGS (31)
  1. ACYCLOVIR [ACICLOVIR] [Concomitant]
     Active Substance: ACYCLOVIR
  2. ATORVASTATIN [Concomitant]
     Active Substance: ATORVASTATIN
     Dosage: 1 DF, QD
     Route: 048
  3. IBUPROFEN. [Concomitant]
     Active Substance: IBUPROFEN
     Dosage: 1 DF, QD (PRN)
     Route: 048
  4. LYRICA [Concomitant]
     Active Substance: PREGABALIN
     Dosage: UNK, TID
     Route: 048
  5. DIAZEPAM. [Concomitant]
     Active Substance: DIAZEPAM
  6. PLAVIX [Concomitant]
     Active Substance: CLOPIDOGREL BISULFATE
     Dosage: 1 DF, QD
  7. TOPIRAMATE. [Concomitant]
     Active Substance: TOPIRAMATE
     Dosage: 1 DF, BID
     Route: 048
  8. HYDROMORPHONE [Concomitant]
     Active Substance: HYDROMORPHONE
  9. AZITHROMYCIN ANHYDROUS. [Concomitant]
     Active Substance: AZITHROMYCIN ANHYDROUS
     Dosage: 250 MG, QD
     Route: 048
  10. LACTULOSE. [Concomitant]
     Active Substance: LACTULOSE
  11. ALBUTEROL. [Concomitant]
     Active Substance: ALBUTEROL
     Indication: WHEEZING
     Dosage: 2.5 MG, QID (PRN)
     Route: 045
  12. AMLODIPINE [Concomitant]
     Active Substance: AMLODIPINE BESYLATE
     Dosage: 5 MG, QD
     Route: 048
  13. GUAIFENESIN. [Concomitant]
     Active Substance: GUAIFENESIN
     Dosage: 10 ML, QID
     Route: 048
  14. COMBIVENT [Concomitant]
     Active Substance: ALBUTEROL SULFATE\IPRATROPIUM BROMIDE
     Dosage: 1 DF, QID (20MCG-100MCG)
     Route: 045
  15. LORAZEPAM. [Concomitant]
     Active Substance: LORAZEPAM
  16. FLUOCINONIDE. [Concomitant]
     Active Substance: FLUOCINONIDE
  17. LOSARTAN. [Concomitant]
     Active Substance: LOSARTAN
     Dosage: 1 DF, QD
     Route: 048
  18. LYRICA [Concomitant]
     Active Substance: PREGABALIN
     Dosage: 1 DF, TID
     Route: 048
  19. MEDROL [Concomitant]
     Active Substance: METHYLPREDNISOLONE
  20. NUEDEXTA [Concomitant]
     Active Substance: DEXTROMETHORPHAN HYDROBROMIDE\QUINIDINE SULFATE
     Dosage: 1 DF, QD
     Route: 048
  21. CYMBALTA [Concomitant]
     Active Substance: DULOXETINE HYDROCHLORIDE
  22. MIRALAX [Suspect]
     Active Substance: POLYETHYLENE GLYCOL 3350
     Dosage: UNK
  23. NYSTATIN. [Concomitant]
     Active Substance: NYSTATIN
     Dosage: TID 1000000UNITS/GM
     Route: 061
  24. SINEMET [Concomitant]
     Active Substance: CARBIDOPA\LEVODOPA
     Dosage: 1 DF, UNK
     Route: 048
  25. TIZANIDINE. [Concomitant]
     Active Substance: TIZANIDINE
     Dosage: 1 DF, HS
  26. DULOXETINE. [Concomitant]
     Active Substance: DULOXETINE
     Dosage: 1 DF, QD
  27. HYDROCHLOROTHIAZIDE. [Concomitant]
     Active Substance: HYDROCHLOROTHIAZIDE
     Dosage: 1 DF, QD
     Route: 048
  28. DICLOFENAC [Concomitant]
     Active Substance: DICLOFENAC
  29. GABAPENTIN. [Concomitant]
     Active Substance: GABAPENTIN
  30. ALBUTEROL. [Concomitant]
     Active Substance: ALBUTEROL
     Indication: WHEEZING
     Dosage: 3 ML, QID
  31. CODEINE [Concomitant]
     Active Substance: CODEINE
     Dosage: 10 ML, QID
     Route: 048

REACTIONS (25)
  - Abdominal pain lower [Unknown]
  - Eyelid ptosis [Unknown]
  - Memory impairment [Unknown]
  - Rash [Unknown]
  - Nasal congestion [Unknown]
  - Dyspnoea [Unknown]
  - Gait disturbance [Unknown]
  - Headache [Unknown]
  - Drug ineffective [Unknown]
  - Eating disorder [Unknown]
  - Discomfort [Unknown]
  - Pain [Unknown]
  - Pain in extremity [Unknown]
  - Abnormal faeces [Unknown]
  - Dry skin [Unknown]
  - Vision blurred [Unknown]
  - Herpes zoster [Unknown]
  - Initial insomnia [Unknown]
  - Dysuria [Unknown]
  - Speech disorder [Unknown]
  - Cough [Unknown]
  - Cerebrovascular accident [Unknown]
  - Stress [Unknown]
  - Dizziness [Unknown]
  - Blood pressure abnormal [Unknown]
